FAERS Safety Report 23102828 (Version 1)
Quarter: 2023Q4

REPORT INFORMATION
  Report Type: Other
  Country: PK (occurrence: None)
  Receive Date: 20231025
  Receipt Date: 20231025
  Transmission Date: 20240109
  Serious: Yes (Death)
  Sender: FDA-Public Use
  Company Number: PK-ROCHE-3444714

PATIENT
  Age: 43 Year
  Sex: Male

DRUGS (1)
  1. AVASTIN [Suspect]
     Active Substance: BEVACIZUMAB
     Indication: Colorectal cancer metastatic
     Dosage: ONGOING NO
     Route: 042
     Dates: start: 20230626

REACTIONS (1)
  - Death [Fatal]

NARRATIVE: CASE EVENT DATE: 20230722
